FAERS Safety Report 4871140-8 (Version None)
Quarter: 2005Q4

REPORT INFORMATION
  Report Type: 
  Country: None (occurrence: None)
  Receive Date: 20051229
  Receipt Date: 20051222
  Transmission Date: 20060501
  Serious: Yes (Hospitalization, Other)
  Sender: FDA-Public Use
  Company Number: 2005-11-1087

PATIENT
  Age: 60 Year
  Sex: Female
  Weight: 55 kg

DRUGS (9)
  1. INTRON A [Suspect]
     Indication: HEPATITIS C
     Dosage: 6 MIU QD-TIW, INTRAMUSCULAR
     Route: 030
     Dates: start: 20050131, end: 20050213
  2. INTRON A [Suspect]
     Indication: HEPATITIS C
     Dosage: 6 MIU QD-TIW, INTRAMUSCULAR
     Route: 030
     Dates: start: 20050215
  3. REBETOL [Suspect]
     Indication: HEPATITIS C
     Dosage: SEE IMAGE
     Route: 048
     Dates: start: 20050131, end: 20050216
  4. REBETOL [Suspect]
     Indication: HEPATITIS C
     Dosage: SEE IMAGE
     Route: 048
     Dates: start: 20050217, end: 20050331
  5. REBETOL [Suspect]
     Indication: HEPATITIS C
     Dosage: SEE IMAGE
     Route: 048
     Dates: start: 20050401
  6. URSO [Concomitant]
  7. ONON (PRANLUKAST) [Concomitant]
  8. VERAPAMIL [Concomitant]
  9. THYRADIN [Concomitant]

REACTIONS (4)
  - ANAEMIA [None]
  - CYSTITIS HAEMORRHAGIC [None]
  - DIZZINESS [None]
  - PALPITATIONS [None]
